FAERS Safety Report 9344605 (Version 1)
Quarter: 2013Q2

REPORT INFORMATION
  Report Type: Spontaneous
  Country: ES (occurrence: ES)
  Receive Date: 20130612
  Receipt Date: 20130612
  Transmission Date: 20140414
  Serious: Yes (Other)
  Sender: FDA-Public Use
  Company Number: ES-VERTEX PHARMACEUTICALS INC-2013-006990

PATIENT
  Age: 59 Year
  Sex: Male
  Weight: 70 kg

DRUGS (4)
  1. INCIVO [Suspect]
     Indication: HEPATITIS C
     Route: 048
     Dates: start: 20130531
  2. RIBAVIRIN [Suspect]
     Indication: HEPATITIS C
     Dates: start: 20130531
  3. INTERFERON [Suspect]
     Indication: HEPATITIS C
     Dates: start: 20130531
  4. MIRTAZAPINE [Concomitant]
     Dates: start: 20121119

REACTIONS (2)
  - Vasculitis [Not Recovered/Not Resolved]
  - Off label use [Not Recovered/Not Resolved]
